FAERS Safety Report 9302896 (Version 2)
Quarter: 2013Q2

REPORT INFORMATION
  Report Type: Spontaneous
  Country: US (occurrence: US)
  Receive Date: 20130522
  Receipt Date: 20130612
  Transmission Date: 20140414
  Serious: Yes (Hospitalization)
  Sender: FDA-Public Use
  Company Number: US-JNJFOC-20130507058

PATIENT
  Age: 59 Year
  Sex: Male
  Weight: 82.1 kg

DRUGS (3)
  1. XARELTO [Suspect]
     Indication: CEREBROVASCULAR ACCIDENT PROPHYLAXIS
     Route: 048
     Dates: start: 201304, end: 201305
  2. XARELTO [Suspect]
     Indication: ATRIAL FIBRILLATION
     Route: 048
     Dates: start: 201304, end: 201305
  3. FISH OIL [Concomitant]
     Route: 065

REACTIONS (2)
  - Transient ischaemic attack [Unknown]
  - Paraesthesia [Recovered/Resolved]
